FAERS Safety Report 4784052-5 (Version None)
Quarter: 2005Q3

REPORT INFORMATION
  Report Type: 
  Country: None (occurrence: None)
  Receive Date: 20050928
  Receipt Date: 20050913
  Transmission Date: 20060218
  Serious: Yes (Hospitalization)
  Sender: FDA-Public Use
  Company Number: USA0508105878

PATIENT
  Age: 89 Year
  Sex: Female
  Weight: 45 kg

DRUGS (2)
  1. FORTEO [Suspect]
     Indication: OSTEOPOROSIS
     Dates: start: 20041101
  2. ATENOLOL [Concomitant]

REACTIONS (12)
  - ASTHENIA [None]
  - BEDRIDDEN [None]
  - CLOSTRIDIAL INFECTION [None]
  - COORDINATION ABNORMAL [None]
  - DRUG INEFFECTIVE [None]
  - DYSPNOEA [None]
  - HIP ARTHROPLASTY [None]
  - IMMOBILE [None]
  - INCONTINENCE [None]
  - PHARMACEUTICAL PRODUCT COMPLAINT [None]
  - SINUSITIS [None]
  - WEIGHT DECREASED [None]
